FAERS Safety Report 20770749 (Version 1)
Quarter: 2022Q2

REPORT INFORMATION
  Report Type: Spontaneous
  Country: US (occurrence: US)
  Receive Date: 20220429
  Receipt Date: 20220429
  Transmission Date: 20220720
  Serious: No
  Sender: FDA-Public Use
  Company Number: US-GLAUKOS-AVE-2021-0201-AE

PATIENT
  Age: 20 Year
  Sex: Female

DRUGS (3)
  1. PHOTREXA VISCOUS [Suspect]
     Active Substance: RIBOFLAVIN 5^-PHOSPHATE SODIUM
     Indication: Keratoconus
     Route: 047
     Dates: start: 20210722, end: 20210722
  2. PHOTREXA VISCOUS [Suspect]
     Active Substance: RIBOFLAVIN 5^-PHOSPHATE SODIUM
     Route: 047
     Dates: start: 20210722, end: 20210722
  3. DEVICE [Suspect]
     Active Substance: DEVICE
     Indication: Keratoconus
     Dosage: 3MW FOR 13 MINUTES
     Route: 047
     Dates: start: 20210722, end: 20210722

REACTIONS (4)
  - Device issue [Unknown]
  - Therapy cessation [Unknown]
  - Incorrect product administration duration [Unknown]
  - No adverse event [Unknown]

NARRATIVE: CASE EVENT DATE: 20210722
